FAERS Safety Report 23761793 (Version 2)
Quarter: 2024Q2

REPORT INFORMATION
  Report Type: Spontaneous
  Country: JP (occurrence: None)
  Receive Date: 20240419
  Receipt Date: 20240501
  Transmission Date: 20240715
  Serious: Yes (Hospitalization)
  Sender: FDA-Public Use
  Company Number: 2024A089588

PATIENT
  Age: 80 Year
  Sex: Female

DRUGS (22)
  1. LOKELMA [Suspect]
     Active Substance: SODIUM ZIRCONIUM CYCLOSILICATE
     Indication: Hyperkalaemia
     Route: 048
     Dates: start: 20240201, end: 20240203
  2. CALCIUM POLYSTYRENE SULFONATE [Suspect]
     Active Substance: CALCIUM POLYSTYRENE SULFONATE
     Indication: Hyperkalaemia
     Dates: start: 20231031, end: 20231206
  3. CALCIUM POLYSTYRENE SULFONATE [Suspect]
     Active Substance: CALCIUM POLYSTYRENE SULFONATE
     Indication: Hyperkalaemia
     Dates: start: 20231207
  4. CALCIUM POLYSTYRENE SULFONATE [Suspect]
     Active Substance: CALCIUM POLYSTYRENE SULFONATE
     Indication: Hyperkalaemia
     Dates: start: 20240204, end: 20240213
  5. FEBUXOSTAT [Concomitant]
     Active Substance: FEBUXOSTAT
     Dosage: DOSE UNKNOWN, THE REPORTING HOSPITAL
     Route: 048
  6. SWERTIA CHIRAYITA/ALDIOXA/ZINGIBER OFFICINALE/VITAMIN U/PERILLA FRUTES [Concomitant]
     Dosage: DOSE UNKNOWN, CLINIC A
     Route: 048
  7. BETAHISTINE MESILATE [Concomitant]
     Active Substance: BETAHISTINE MESILATE
     Dosage: DOSE UNKNOWN, CLINIC A
     Route: 048
  8. IFENPRODIL TARTRATE [Concomitant]
     Active Substance: IFENPRODIL TARTRATE
     Dosage: DOSE UNKNOWN, CLINIC A
     Route: 048
  9. TOCOPHERYL NICOTINATE, D-.ALPHA. [Concomitant]
     Active Substance: TOCOPHERYL NICOTINATE, D-.ALPHA.
     Dosage: DOSE UNKNOWN, CLINIC A
     Route: 048
  10. VADADUSTAT [Concomitant]
     Active Substance: VADADUSTAT
     Dosage: DOSE UNKNOWN, CLINIC A
     Route: 048
  11. ASPIRIN [Concomitant]
     Active Substance: ASPIRIN
     Dosage: DOSE UNKNOWN, CLINIC A
     Route: 048
  12. SODIUM FERROUS CITRATE [Concomitant]
     Active Substance: SODIUM FERROUS CITRATE
     Dosage: DOSE UNKNOWN, CLINIC A
     Route: 048
  13. TELMISARTAN [Concomitant]
     Active Substance: TELMISARTAN
     Dosage: DOSE UNKNOWN, CLINIC A
     Route: 048
  14. PRAVASTATIN SODIUM [Concomitant]
     Active Substance: PRAVASTATIN SODIUM
     Dosage: DOSE UNKNOWN, CLINIC A
     Route: 048
  15. DIMETICONE/MOSAPRIDE CITRATE [Concomitant]
     Dosage: DOSE UNKNOWN, CLINIC A
     Route: 048
  16. LEVOTHYROXINE SODIUM [Concomitant]
     Active Substance: LEVOTHYROXINE SODIUM
     Dosage: DOSE UNKNOWN, CLINIC A
     Route: 048
  17. VONOPRAZAN FUMARATE [Concomitant]
     Active Substance: VONOPRAZAN FUMARATE
     Dosage: DOSE UNKNOWN, CLINIC A
     Route: 048
  18. SENNOSIDES [Concomitant]
     Active Substance: SENNOSIDES
     Dosage: DOSE UNKNOWN, CLINIC A
     Route: 048
  19. REBAMIPIDE [Concomitant]
     Active Substance: REBAMIPIDE
     Dosage: DOSE UNKNOWN, CLINIC A
     Route: 048
  20. DOMPERIDONE [Concomitant]
     Active Substance: DOMPERIDONE
     Dosage: DOSE UNKNOWN, CLINIC A
     Route: 048
  21. ACETAMINOPHEN [Concomitant]
     Active Substance: ACETAMINOPHEN
     Dosage: AS NEEDED, DOSE UNKNOWN, CLINIC A
     Route: 048
  22. BUTYLSCOPORAMINE [Concomitant]
     Dosage: AS NEEDED, DOSE UNKNOWN, CLINIC A
     Route: 048

REACTIONS (4)
  - Hypercalcaemia [Recovered/Resolved]
  - Diarrhoea [Recovered/Resolved]
  - Constipation [Recovering/Resolving]
  - Product residue present [Unknown]

NARRATIVE: CASE EVENT DATE: 20240208
